FAERS Safety Report 15097620 (Version 2)
Quarter: 2018Q3

REPORT INFORMATION
  Report Type: Report from Study
  Country: JP (occurrence: JP)
  Receive Date: 20180702
  Receipt Date: 20180810
  Transmission Date: 20181010
  Serious: Yes (Death, Hospitalization)
  Sender: FDA-Public Use
  Company Number: JP-ACTELION-A-CH2017-161932

PATIENT
  Age: 91 Year
  Sex: Female

DRUGS (13)
  1. ALDACTONE A [Concomitant]
     Active Substance: SPIRONOLACTONE
  2. CARELOAD [Concomitant]
     Active Substance: BERAPROST SODIUM
  3. MICARDIS [Concomitant]
     Active Substance: TELMISARTAN
  4. ALFAROL [Concomitant]
     Active Substance: ALFACALCIDOL
  5. FUROSEMIDE. [Concomitant]
     Active Substance: FUROSEMIDE
  6. OMEPRAL [Concomitant]
     Active Substance: OMEPRAZOLE
  7. OPSUMIT [Suspect]
     Active Substance: MACITENTAN
     Indication: PULMONARY ARTERIAL HYPERTENSION
     Dosage: 10 MG, OD
     Route: 048
     Dates: start: 20160509, end: 20170803
  8. BIOFERMIN [Concomitant]
     Active Substance: BACILLUS SUBTILIS\LACTOBACILLUS ACIDOPHILUS\STREPTOCOCCUS FAECAIS
  9. MEVALOTIN [Concomitant]
     Active Substance: PRAVASTATIN SODIUM
  10. SAMSCA [Concomitant]
     Active Substance: TOLVAPTAN
  11. ADCIRCA [Concomitant]
     Active Substance: TADALAFIL
  12. DEPAS [Concomitant]
     Active Substance: ETIZOLAM
  13. OXYGEN. [Concomitant]
     Active Substance: OXYGEN

REACTIONS (13)
  - Blood pressure decreased [Fatal]
  - Sepsis [Fatal]
  - Disseminated intravascular coagulation [Fatal]
  - Bacteraemia [Fatal]
  - Cardiac failure chronic [Not Recovered/Not Resolved]
  - Transfusion [Unknown]
  - Concomitant disease aggravated [Not Recovered/Not Resolved]
  - Pneumonia aspiration [Fatal]
  - Pleurisy [Not Recovered/Not Resolved]
  - Anaemia [Not Recovered/Not Resolved]
  - Pleural effusion [Not Recovered/Not Resolved]
  - General physical health deterioration [Fatal]
  - Respiratory disorder [Fatal]

NARRATIVE: CASE EVENT DATE: 2017
